APPROVED DRUG PRODUCT: QUADRAMET
Active Ingredient: SAMARIUM SM-153 LEXIDRONAM PENTASODIUM
Strength: 50mCi/ML
Dosage Form/Route: INJECTABLE;INJECTION
Application: N020570 | Product #001
Applicant: LANTHEUS MEDICAL IMAGING INC
Approved: Mar 28, 1997 | RLD: Yes | RS: No | Type: DISCN